FAERS Safety Report 4400531-4 (Version None)
Quarter: 2004Q3

REPORT INFORMATION
  Report Type: 
  Country: None (occurrence: None)
  Receive Date: 20040716
  Receipt Date: 20040716
  Transmission Date: 20050211
  Serious: Yes (Death)
  Sender: FDA-Public Use
  Company Number: None

PATIENT
  Age: 80 Year
  Sex: Female
  Weight: 52.1637 kg

DRUGS (7)
  1. DEPO-PROVERA [Suspect]
     Indication: ENDOMETRIAL CANCER
     Dosage: 400 MG X1  INTRAMUSCULAR
     Route: 030
     Dates: start: 20040616, end: 20040616
  2. ASACOL [Concomitant]
  3. VIOXX [Concomitant]
  4. NORVASC [Concomitant]
  5. LASIX [Concomitant]
  6. LIPITOR [Concomitant]
  7. FOSAMAX [Concomitant]

REACTIONS (15)
  - ASCITES [None]
  - CANDIDIASIS [None]
  - CIRCULATORY COLLAPSE [None]
  - CONFUSIONAL STATE [None]
  - FUNGAEMIA [None]
  - FUNGAL SEPSIS [None]
  - GASTROINTESTINAL HAEMORRHAGE [None]
  - HAEMODYNAMIC INSTABILITY [None]
  - LACTIC ACIDOSIS [None]
  - MALIGNANT NEOPLASM PROGRESSION [None]
  - PLEURAL EFFUSION [None]
  - RENAL FAILURE [None]
  - TACHYPNOEA [None]
  - TUMOUR NECROSIS [None]
  - UTERINE ENLARGEMENT [None]
